FAERS Safety Report 25775475 (Version 2)
Quarter: 2025Q3

REPORT INFORMATION
  Report Type: Spontaneous
  Country: EU (occurrence: EU)
  Receive Date: 20250909
  Receipt Date: 20250925
  Transmission Date: 20251021
  Serious: Yes (Other)
  Sender: ALEXION PHARMACEUTICALS
  Company Number: EU-ASTRAZENECA-202509EEA003846CZ

PATIENT
  Sex: Male

DRUGS (4)
  1. IMFINZI [Suspect]
     Active Substance: DURVALUMAB
     Indication: Ureteric cancer
     Route: 065
  2. TREMELIMUMAB [Concomitant]
     Active Substance: TREMELIMUMAB
     Indication: Ureteric cancer
     Route: 065
  3. GEMCITABINE [Concomitant]
     Active Substance: GEMCITABINE
     Indication: Ureteric cancer
     Route: 065
  4. CARBOPLATIN [Concomitant]
     Active Substance: CARBOPLATIN
     Route: 065

REACTIONS (8)
  - Malignant neoplasm progression [Unknown]
  - Metastases to liver [Unknown]
  - Metastases to lung [Unknown]
  - Mucosal dryness [Unknown]
  - Nausea [Unknown]
  - Decreased appetite [Unknown]
  - Tinnitus [Unknown]
  - Anaemia [Unknown]
